FAERS Safety Report 6716163-9 (Version None)
Quarter: 2010Q2

REPORT INFORMATION
  Report Type: 
  Country: None (occurrence: None)
  Receive Date: 20100506
  Receipt Date: 20100506
  Transmission Date: 20101027
  Serious: No
  Sender: FDA-Public Use
  Company Number: None

PATIENT
  Age: 49 Year
  Sex: Male
  Weight: 112.45 kg

DRUGS (1)
  1. ETHYL CHLORIDE [Suspect]
     Indication: OSTEOARTHRITIS
     Dosage: ONCE TOP
     Route: 061
     Dates: start: 20100205, end: 20100303

REACTIONS (3)
  - DERMATITIS ALLERGIC [None]
  - DRY SKIN [None]
  - FROSTBITE [None]
